FAERS Safety Report 22057702 (Version 1)
Quarter: 2023Q1

REPORT INFORMATION
  Report Type: Spontaneous
  Country: US (occurrence: US)
  Receive Date: 20230303
  Receipt Date: 20230303
  Transmission Date: 20230418
  Serious: Yes (Death, Other)
  Sender: FDA-Public Use
  Company Number: US-AUROBINDO-AUR-APL-2023-009166

PATIENT
  Age: 60 Year
  Sex: Female

DRUGS (2)
  1. ALPRAZOLAM [Suspect]
     Active Substance: ALPRAZOLAM
     Indication: Product used for unknown indication
     Dosage: UNK
     Route: 065
  2. ZOLPIDEM [Suspect]
     Active Substance: ZOLPIDEM TARTRATE
     Indication: Product used for unknown indication
     Dosage: UNK
     Route: 065

REACTIONS (9)
  - Coma [Fatal]
  - Hepatotoxicity [Fatal]
  - Electrocardiogram QT prolonged [Fatal]
  - Pneumonitis aspiration [Fatal]
  - Respiratory depression [Fatal]
  - Depressed level of consciousness [Fatal]
  - Metabolic acidosis [Fatal]
  - Anion gap [Fatal]
  - Toxicity to various agents [Fatal]
